FAERS Safety Report 4855735-3 (Version None)
Quarter: 2005Q4

REPORT INFORMATION
  Report Type: 
  Country: None (occurrence: None)
  Receive Date: 20051216
  Receipt Date: 20051206
  Transmission Date: 20060501
  Serious: Yes (Hospitalization)
  Sender: FDA-Public Use
  Company Number: PHRM2005FR03225

PATIENT
  Age: 49 Year
  Sex: Female

DRUGS (14)
  1. APROVEL [Concomitant]
     Indication: ESSENTIAL HYPERTENSION
     Dosage: 300 MG, QD
     Route: 048
  2. TERCIAN [Concomitant]
     Indication: DEPRESSION
     Dosage: 100 MG, QD
     Route: 048
  3. FLUDEX [Concomitant]
     Indication: ESSENTIAL HYPERTENSION
     Route: 048
  4. EFFEXOR [Concomitant]
     Indication: DEPRESSION
     Dosage: 75 MG, QD
     Route: 048
  5. FLIXOTIDE DISKUS [Concomitant]
  6. IMODIUM [Concomitant]
     Dosage: 6 MG/DAY
     Route: 048
  7. INSULIN MIXTARD [Concomitant]
     Dosage: 54 IU/ML, BID
     Route: 058
  8. PRIMPERAN INJ [Concomitant]
     Dosage: 10 MG, PRN
  9. THERALENE [Concomitant]
     Dosage: 15 MG/DAY
     Route: 048
  10. TRANXENE [Concomitant]
     Dosage: 50 MG/DAY
     Route: 048
  11. DOLIPRANE [Concomitant]
     Dosage: 1000 MG, TID
     Route: 048
  12. DANTRIUM [Concomitant]
     Dosage: 100 MG, BID
     Route: 048
  13. VOLTARENE LP [Suspect]
     Indication: BACK PAIN
     Dosage: 100 MG, QD
     Route: 048
     Dates: start: 20051018, end: 20051025
  14. PROFENID [Suspect]
     Indication: BACK PAIN
     Dosage: 50 MG, TID
     Route: 048
     Dates: start: 20051026, end: 20051027

REACTIONS (14)
  - ABDOMINAL PAIN [None]
  - BLOOD PRESSURE DECREASED [None]
  - C-REACTIVE PROTEIN INCREASED [None]
  - COLITIS ISCHAEMIC [None]
  - EOSINOPHIL COUNT INCREASED [None]
  - FLATULENCE [None]
  - MELAENA [None]
  - NAUSEA [None]
  - NEUTROPHIL COUNT INCREASED [None]
  - RECTAL HAEMORRHAGE [None]
  - RED BLOOD CELL COUNT DECREASED [None]
  - TACHYCARDIA [None]
  - TACHYPNOEA [None]
  - WHITE BLOOD CELL COUNT INCREASED [None]
